FAERS Safety Report 7093661-2 (Version None)
Quarter: 2010Q4

REPORT INFORMATION
  Report Type: 
  Country: None (occurrence: None)
  Receive Date: 20101110
  Receipt Date: 20090730
  Transmission Date: 20110411
  Serious: No
  Sender: FDA-Public Use
  Company Number: US-KINGPHARMUSA00001-K200900923

PATIENT
  Sex: Female

DRUGS (1)
  1. EPIPEN [Suspect]
     Dosage: 0.3 MG, SINGLE
     Dates: start: 20090730, end: 20090730

REACTIONS (3)
  - ACCIDENTAL EXPOSURE [None]
  - INJECTION SITE COLDNESS [None]
  - INJECTION SITE DISCOLOURATION [None]
